FAERS Safety Report 14346863 (Version 1)
Quarter: 2018Q1

REPORT INFORMATION
  Report Type: Spontaneous
  Country: US (occurrence: US)
  Receive Date: 20180103
  Receipt Date: 20180103
  Transmission Date: 20180509
  Serious: No
  Sender: FDA-Public Use
  Company Number: US-PFIZER INC-2018000251

PATIENT
  Age: 27 Year
  Sex: Female
  Weight: 49.9 kg

DRUGS (2)
  1. LYRICA [Suspect]
     Active Substance: PREGABALIN
     Indication: NEUROPATHY PERIPHERAL
     Dosage: 50 MG, CAPSULE, 3 TIMES A DAY
     Route: 048
     Dates: start: 201710
  2. FLORINEF ACETATE [Concomitant]
     Active Substance: FLUDROCORTISONE ACETATE
     Indication: HYPOTENSION
     Dosage: 0.2 MG, ONCE A DAY, TABLET
     Route: 048
     Dates: start: 201710

REACTIONS (1)
  - Drug ineffective [Unknown]
